FAERS Safety Report 5498675-1 (Version None)
Quarter: 2007Q4

REPORT INFORMATION
  Report Type: 
  Country: None (occurrence: None)
  Receive Date: 20071024
  Receipt Date: 20071024
  Transmission Date: 20080405
  Serious: Yes (Hospitalization)
  Sender: FDA-Public Use
  Company Number: None

PATIENT
  Age: 59 Year
  Sex: Male
  Weight: 117.028 kg

DRUGS (2)
  1. ATACAND [Suspect]
     Indication: DIABETES MELLITUS
     Dosage: 8.0MG ONCE DAILY PO
     Route: 048
  2. ATACAND [Suspect]
     Indication: MYOCARDIAL INFARCTION
     Dosage: 8.0MG ONCE DAILY PO
     Route: 048

REACTIONS (3)
  - CORONARY ARTERY DISEASE [None]
  - DYSPNOEA EXERTIONAL [None]
  - MYOCARDIAL ISCHAEMIA [None]
